FAERS Safety Report 8957661 (Version 2)
Quarter: 2014Q4

REPORT INFORMATION
  Report Type: Spontaneous
  Country: US (occurrence: US)
  Receive Date: 20121211
  Receipt Date: 20141125
  Transmission Date: 20150529
  Serious: No
  Sender: FDA-Public Use
  Company Number: US-BIOGENIDEC-2012BI057650

PATIENT
  Sex: Female

DRUGS (2)
  1. AVONEX [Suspect]
     Active Substance: INTERFERON BETA-1A
     Indication: MULTIPLE SCLEROSIS
     Route: 030
  2. AVONEX [Suspect]
     Active Substance: INTERFERON BETA-1A
     Indication: MULTIPLE SCLEROSIS
     Route: 030
     Dates: start: 20120203, end: 20121110

REACTIONS (12)
  - Limb discomfort [Recovered/Resolved]
  - Paraesthesia [Not Recovered/Not Resolved]
  - Pollakiuria [Recovered/Resolved]
  - Visual impairment [Not Recovered/Not Resolved]
  - Fatigue [Recovered/Resolved]
  - Procedural anxiety [Recovered/Resolved]
  - Chills [Recovered/Resolved]
  - Depression [Recovered/Resolved]
  - Bladder disorder [Recovered/Resolved]
  - Influenza like illness [Recovered/Resolved]
  - Injection site bruising [Recovered/Resolved]
  - Distractibility [Not Recovered/Not Resolved]

NARRATIVE: CASE EVENT DATE: 2012
